FAERS Safety Report 21655090 (Version 2)
Quarter: 2023Q1

REPORT INFORMATION
  Report Type: Report from Study
  Country: US (occurrence: US)
  Receive Date: 20221129
  Receipt Date: 20230313
  Transmission Date: 20230418
  Serious: No
  Sender: FDA-Public Use
  Company Number: US-ABBVIE-4183193

PATIENT
  Sex: Male
  Weight: 105.68 kg

DRUGS (2)
  1. SKYRIZI [Suspect]
     Active Substance: RISANKIZUMAB-RZAA
     Indication: Psoriasis
     Dosage: 150 MILLIGRAM
     Route: 058
     Dates: start: 20210118
  2. PRAVASTATIN TAB 20MG [Concomitant]
     Indication: Product used for unknown indication
     Route: 048

REACTIONS (1)
  - Psoriasis [Recovered/Resolved]
